FAERS Safety Report 19242390 (Version 3)
Quarter: 2022Q2

REPORT INFORMATION
  Report Type: Spontaneous
  Country: CA (occurrence: CA)
  Receive Date: 20210511
  Receipt Date: 20220614
  Transmission Date: 20220721
  Serious: Yes (Hospitalization, Other)
  Sender: FDA-Public Use
  Company Number: CA-SAMSUNG BIOEPIS-SB-2021-11207

PATIENT
  Age: 57 Year
  Sex: Male
  Weight: 86 kg

DRUGS (10)
  1. INFLIXIMAB [Suspect]
     Active Substance: INFLIXIMAB
     Indication: Crohn^s disease
     Route: 042
  2. BUTYLSCOPOLAMINE BROMIDE [Concomitant]
     Active Substance: BUTYLSCOPOLAMINE BROMIDE
     Indication: Product used for unknown indication
     Route: 065
  3. HYDROCORTISONE [Concomitant]
     Active Substance: HYDROCORTISONE
     Indication: Premedication
     Route: 042
  4. INSULIN NOS [Concomitant]
     Active Substance: INSULIN NOS
     Indication: Product used for unknown indication
     Dosage: GLOBULES ORAL
     Route: 065
  5. Metadol [Concomitant]
     Indication: Product used for unknown indication
     Route: 065
  6. METOCLOPRAMIDE [Concomitant]
     Active Substance: METOCLOPRAMIDE
     Indication: Product used for unknown indication
     Route: 065
  7. MIRTAZAPINE [Concomitant]
     Active Substance: MIRTAZAPINE
     Indication: Product used for unknown indication
     Route: 065
  8. PANTOPRAZOLE [Concomitant]
     Active Substance: PANTOPRAZOLE
     Indication: Product used for unknown indication
     Route: 065
  9. QUETIAPINE [Concomitant]
     Active Substance: QUETIAPINE
     Indication: Product used for unknown indication
     Route: 065
  10. SIMVASTATIN [Concomitant]
     Active Substance: SIMVASTATIN
     Indication: Product used for unknown indication
     Route: 065

REACTIONS (14)
  - Acute myocardial infarction [Recovered/Resolved]
  - Arthralgia [Not Recovered/Not Resolved]
  - Condition aggravated [Not Recovered/Not Resolved]
  - Diabetic ketoacidosis [Recovered/Resolved]
  - Weight decreased [Not Recovered/Not Resolved]
  - Social problem [Not Recovered/Not Resolved]
  - Blood pressure increased [Not Recovered/Not Resolved]
  - Constipation [Not Recovered/Not Resolved]
  - Illness [Not Recovered/Not Resolved]
  - Malaise [Not Recovered/Not Resolved]
  - Urinary tract infection [Not Recovered/Not Resolved]
  - Inappropriate schedule of product administration [Not Recovered/Not Resolved]
  - Intentional product use issue [Not Recovered/Not Resolved]
  - Off label use [Not Recovered/Not Resolved]
